FAERS Safety Report 4983554-6 (Version None)
Quarter: 2006Q2

REPORT INFORMATION
  Report Type: 
  Country: None (occurrence: None)
  Receive Date: 20060426
  Receipt Date: 20040311
  Transmission Date: 20061013
  Serious: Yes (Life-Threatening, Hospitalization)
  Sender: FDA-Public Use
  Company Number: CA-ROCHE-361561

PATIENT
  Age: 26 Year
  Sex: Female
  Weight: 138 kg

DRUGS (2)
  1. ACCUTANE [Suspect]
     Indication: ACNE
     Route: 048
     Dates: start: 20040115, end: 20040115
  2. DIANE 35 [Concomitant]
     Indication: CONTRACEPTION
     Dates: start: 20000915, end: 20010415

REACTIONS (3)
  - CEREBROVASCULAR DISORDER [None]
  - MYOCARDIAL INFARCTION [None]
  - PULMONARY EMBOLISM [None]
